FAERS Safety Report 15827567 (Version 5)
Quarter: 2019Q1

REPORT INFORMATION
  Report Type: Report from Study
  Country: None (occurrence: ES)
  Receive Date: 20190115
  Receipt Date: 20190207
  Transmission Date: 20190417
  Serious: Yes (Hospitalization, Other)
  Sender: FDA-Public Use
  Company Number: ES-ABBVIE-19S-144-2624118-00

PATIENT
  Age: 82 Year
  Sex: Female

DRUGS (8)
  1. DUODOPA [Suspect]
     Active Substance: CARBIDOPA\LEVODOPA
     Route: 050
     Dates: start: 20190130
  2. LANTUS [Concomitant]
     Active Substance: INSULIN GLARGINE
     Indication: PRODUCT USED FOR UNKNOWN INDICATION
  3. SINEMET RETARD [Concomitant]
     Indication: PRODUCT USED FOR UNKNOWN INDICATION
     Dosage: (6H-24H)
  4. AZILECT [Concomitant]
     Active Substance: RASAGILINE MESYLATE
     Indication: PRODUCT USED FOR UNKNOWN INDICATION
  5. PARACETAMOL [Concomitant]
     Active Substance: ACETAMINOPHEN
     Indication: PRODUCT USED FOR UNKNOWN INDICATION
  6. DUODOPA [Suspect]
     Active Substance: CARBIDOPA\LEVODOPA
     Indication: PARKINSON^S DISEASE
     Route: 050
     Dates: start: 20160603, end: 201901
  7. SINEMET PLUS [Concomitant]
     Active Substance: CARBIDOPA\LEVODOPA
     Indication: PRODUCT USED FOR UNKNOWN INDICATION
     Dosage: (12H-18H)
  8. ZOLPIDEM [Concomitant]
     Active Substance: ZOLPIDEM\ZOLPIDEM TARTRATE
     Indication: PRODUCT USED FOR UNKNOWN INDICATION

REACTIONS (13)
  - Nausea [Unknown]
  - Constipation [Unknown]
  - Stoma site oedema [Unknown]
  - Medical device site pain [Unknown]
  - Haematemesis [Unknown]
  - Embedded device [Recovered/Resolved]
  - Respiratory failure [Recovering/Resolving]
  - Pulmonary embolism [Recovering/Resolving]
  - Red blood cell count decreased [Recovered/Resolved]
  - Stoma site discharge [Unknown]
  - Embedded device [Unknown]
  - Haemorrhage [Recovered/Resolved]
  - Erosive oesophagitis [Unknown]

NARRATIVE: CASE EVENT DATE: 2018
